FAERS Safety Report 9768366 (Version 2)
Quarter: 2014Q2

REPORT INFORMATION
  Report Type: Spontaneous
  Country: JP (occurrence: JP)
  Receive Date: 20131217
  Receipt Date: 20140411
  Transmission Date: 20141212
  Serious: Yes (Other)
  Sender: FDA-Public Use
  Company Number: PHHY2013JP145997

PATIENT
  Age: 14 Year
  Sex: Male

DRUGS (6)
  1. CISPLATIN [Suspect]
     Indication: CHEMOTHERAPY
  2. ETOPOSIDE [Suspect]
     Indication: CHEMOTHERAPY
  3. BLEOMYCIN [Suspect]
     Indication: CHEMOTHERAPY
  4. IFOSFAMIDE [Suspect]
     Indication: CHEMOTHERAPY
  5. PARAPLATIN [Suspect]
     Indication: CHEMOTHERAPY
  6. CYCLOPHOSPHAMIDE [Suspect]
     Indication: CHEMOTHERAPY

REACTIONS (2)
  - Renal failure acute [Recovering/Resolving]
  - Toxic encephalopathy [Recovering/Resolving]
